FAERS Safety Report 25207877 (Version 1)
Quarter: 2025Q2

REPORT INFORMATION
  Report Type: Spontaneous
  Country: US (occurrence: US)
  Receive Date: 20250417
  Receipt Date: 20250417
  Transmission Date: 20250717
  Serious: Yes (Death, Hospitalization, Other)
  Sender: MERCK SHARP AND DOHME
  Company Number: US-009507513-2275317

PATIENT
  Age: 58 Year
  Sex: Female

DRUGS (1)
  1. LETERMOVIR [Suspect]
     Active Substance: LETERMOVIR
     Indication: Prophylaxis

REACTIONS (7)
  - Respiratory failure [Fatal]
  - Acute graft versus host disease in intestine [Unknown]
  - Escherichia sepsis [Fatal]
  - Multiple organ dysfunction syndrome [Fatal]
  - Cytomegalovirus test positive [Unknown]
  - Septic shock [Fatal]
  - Renal impairment [Unknown]
